FAERS Safety Report 5531701-X (Version None)
Quarter: 2007Q4

REPORT INFORMATION
  Report Type: 
  Country: None (occurrence: None)
  Receive Date: 20071119
  Receipt Date: 20070926
  Transmission Date: 20080405
  Serious: No
  Sender: FDA-Public Use
  Company Number: TPA2007A01803

PATIENT
  Age: 41 Year
  Sex: Female
  Weight: 58.0604 kg

DRUGS (5)
  1. ROZEREM [Suspect]
     Indication: INSOMNIA
     Dosage: 8 MG, QHS, PER ORAL
     Route: 048
     Dates: start: 20070823, end: 20070823
  2. SEROQUEL [Concomitant]
  3. MOTRIN [Concomitant]
  4. MS CONTIN [Concomitant]
  5. XANAX [Concomitant]

REACTIONS (4)
  - HEADACHE [None]
  - INITIAL INSOMNIA [None]
  - MALAISE [None]
  - VOMITING [None]
